FAERS Safety Report 23822233 (Version 3)
Quarter: 2025Q3

REPORT INFORMATION
  Report Type: Report from Study
  Country: US (occurrence: US)
  Receive Date: 20240506
  Receipt Date: 20250810
  Transmission Date: 20251021
  Serious: No
  Sender: ALEXION PHARMACEUTICALS
  Company Number: US-AstraZeneca-CH-00616921A

PATIENT
  Sex: Male

DRUGS (1)
  1. SOLIRIS [Suspect]
     Active Substance: ECULIZUMAB
     Indication: Myasthenia gravis
     Route: 065

REACTIONS (4)
  - Poor venous access [Unknown]
  - Nervousness [Recovered/Resolved]
  - Palpitations [Not Recovered/Not Resolved]
  - Headache [Recovered/Resolved]
